FAERS Safety Report 22835610 (Version 5)
Quarter: 2024Q1

REPORT INFORMATION
  Report Type: Spontaneous
  Country: US (occurrence: US)
  Receive Date: 20230818
  Receipt Date: 20240109
  Transmission Date: 20240410
  Serious: No
  Sender: FDA-Public Use
  Company Number: US-SA-SAC20230816000202

PATIENT
  Age: 42 Year
  Sex: Female

DRUGS (1)
  1. DUPIXENT [Suspect]
     Active Substance: DUPILUMAB
     Indication: Dermatitis atopic
     Dosage: 300 MG, QOW
     Route: 058

REACTIONS (11)
  - Feeling hot [Unknown]
  - Abdominal distension [Unknown]
  - Fatigue [Unknown]
  - Asthenia [Unknown]
  - Nervous system disorder [Unknown]
  - Abdominal pain upper [Unknown]
  - Dry throat [Unknown]
  - Dry mouth [Unknown]
  - Eye swelling [Unknown]
  - Skin burning sensation [Unknown]
  - Eczema [Unknown]
